FAERS Safety Report 13486701 (Version 3)
Quarter: 2017Q3

REPORT INFORMATION
  Report Type: Spontaneous
  Country: US (occurrence: US)
  Receive Date: 20170426
  Receipt Date: 20170725
  Transmission Date: 20171127
  Serious: Yes (Hospitalization, Other)
  Sender: FDA-Public Use
  Company Number: US-GLAXOSMITHKLINE-A0333590B

PATIENT
  Age: 75 Year
  Sex: Female

DRUGS (6)
  1. COUMADIN [Concomitant]
     Active Substance: WARFARIN SODIUM
     Indication: PRODUCT USED FOR UNKNOWN INDICATION
     Dosage: UNK
  2. METOPROLOL. [Concomitant]
     Active Substance: METOPROLOL
     Indication: PRODUCT USED FOR UNKNOWN INDICATION
     Dosage: UNK
  3. PONARIS [Suspect]
     Active Substance: CAJUPUT OIL\EUCALYPTUS OIL\PEPPERMINT OIL
     Indication: PRODUCT USED FOR UNKNOWN INDICATION
     Dosage: UNK
  4. AQUAFRESH TARTAR CONTROL WHITENING [Suspect]
     Active Substance: SODIUM FLUORIDE
     Indication: PRODUCT USED FOR UNKNOWN INDICATION
     Dosage: UNK
     Route: 048
  5. ASPIRIN. [Concomitant]
     Active Substance: ASPIRIN
     Indication: PRODUCT USED FOR UNKNOWN INDICATION
     Dosage: UNK
  6. AQUAFRESH WHITENING INTENSE WHITE [Suspect]
     Active Substance: SODIUM FLUORIDE
     Indication: PRODUCT USED FOR UNKNOWN INDICATION
     Dosage: UNK
     Route: 048

REACTIONS (24)
  - Shock [Recovered/Resolved]
  - Throat tightness [Recovered/Resolved]
  - Cyanosis [Recovered/Resolved]
  - Chest discomfort [Unknown]
  - Dyspnoea [Unknown]
  - Blood pressure decreased [Unknown]
  - Condition aggravated [Unknown]
  - Tachypnoea [Recovered/Resolved]
  - Urticaria [Unknown]
  - Oxygen saturation decreased [Unknown]
  - Loss of consciousness [Unknown]
  - Anxiety [Unknown]
  - Hypotension [Recovered/Resolved]
  - Tachycardia [Recovered/Resolved]
  - Myocardial infarction [Unknown]
  - Thrombosis [Unknown]
  - Hypoxia [Recovered/Resolved]
  - Syncope [Unknown]
  - Bronchospasm [Recovered/Resolved]
  - Poor peripheral circulation [Recovered/Resolved]
  - Emergency care examination [Unknown]
  - Anaphylactic reaction [Unknown]
  - Wheezing [Recovered/Resolved]
  - Pulse pressure decreased [Recovered/Resolved]

NARRATIVE: CASE EVENT DATE: 200101
